FAERS Safety Report 24589436 (Version 1)
Quarter: 2024Q4

REPORT INFORMATION
  Report Type: Spontaneous
  Country: US (occurrence: None)
  Receive Date: 20241106
  Receipt Date: 20241106
  Transmission Date: 20250115
  Serious: Yes (Other)
  Sender: Public
  Company Number: None

PATIENT
  Age: 18 Year
  Sex: Female
  Weight: 74.25 kg

DRUGS (1)
  1. KYLEENA [Suspect]
     Active Substance: LEVONORGESTREL
     Indication: Contraception
     Dates: start: 20170701, end: 20191001

REACTIONS (6)
  - Weight increased [None]
  - Breast enlargement [None]
  - Loss of libido [None]
  - Increased appetite [None]
  - Depression [None]
  - Acne [None]
